FAERS Safety Report 9736421 (Version 1)
Quarter: 2013Q4

REPORT INFORMATION
  Report Type: Spontaneous
  Country: US (occurrence: US)
  Receive Date: 20131206
  Receipt Date: 20131206
  Transmission Date: 20140711
  Serious: Yes (Hospitalization)
  Sender: FDA-Public Use
  Company Number: US-BAYER-2013-147487

PATIENT
  Age: 34 Year
  Sex: Female
  Weight: 79.4 kg

DRUGS (8)
  1. YAZ [Suspect]
     Indication: MENSTRUATION IRREGULAR
     Dosage: UNK
  2. OCELLA [Suspect]
     Indication: MENSTRUATION IRREGULAR
     Dosage: UNK
  3. DIAZEPAM [Concomitant]
     Dosage: 5 MG, UNK
  4. PROMETHAZINE [Concomitant]
     Dosage: 25 MG, UNK
  5. METHYLPREDNISOLONE [Concomitant]
     Dosage: 4 MG, UNK
  6. AZITHROMYCIN [Concomitant]
     Dosage: 250 MG, UNK
  7. ZOLOFT [Concomitant]
     Dosage: 50 MG, DAILY
     Dates: start: 20100128
  8. ADVIL [Concomitant]
     Dosage: UNK
     Dates: start: 20100128

REACTIONS (2)
  - Pulmonary embolism [None]
  - Deep vein thrombosis [None]
